FAERS Safety Report 4304546-6 (Version None)
Quarter: 2004Q1

REPORT INFORMATION
  Report Type: 
  Country: None (occurrence: None)
  Receive Date: 20040226
  Receipt Date: 20031124
  Transmission Date: 20041129
  Serious: Yes (Hospitalization)
  Sender: FDA-Public Use
  Company Number: 12442299

PATIENT
  Age: 41 Year
  Sex: Male

DRUGS (4)
  1. EFAVIRENZ [Suspect]
     Indication: HIV INFECTION
  2. LAMIVUDINE [Suspect]
     Indication: HIV INFECTION
  3. ZIDOVUDINE [Suspect]
     Indication: HIV INFECTION
  4. CO-TRIMOXAZOLE [Concomitant]
     Indication: INFECTION PROPHYLAXIS

REACTIONS (6)
  - ACUTE RESPIRATORY DISTRESS SYNDROME [None]
  - GENERAL PHYSICAL HEALTH DETERIORATION [None]
  - IMMUNE RECONSTITUTION SYNDROME [None]
  - PULMONARY TUBERCULOSIS [None]
  - RESPIRATORY FAILURE [None]
  - TUBERCULOSIS [None]
